FAERS Safety Report 10456846 (Version 1)
Quarter: 2014Q3

REPORT INFORMATION
  Report Type: Spontaneous
  Country: GB (occurrence: None)
  Receive Date: 20140912
  Receipt Date: 20140912
  Transmission Date: 20150326
  Serious: Yes (Hospitalization)
  Sender: FDA-Public Use
  Company Number: 2523879

PATIENT
  Age: 33 Year
  Sex: Female

DRUGS (8)
  1. TRASTUZUMAB [Concomitant]
     Active Substance: TRASTUZUMAB
  2. CARBOPLATIN. [Suspect]
     Active Substance: CARBOPLATIN
     Indication: PRODUCT USED FOR UNKNOWN INDICATION
     Dates: start: 20130322, end: 20130322
  3. DOCETAXEL [Suspect]
     Active Substance: DOCETAXEL
     Indication: PRODUCT USED FOR UNKNOWN INDICATION
     Dates: start: 20130322, end: 20130322
  4. APREPITANT [Concomitant]
     Active Substance: APREPITANT
  5. MACROGOL W/POTASSIUIM CHLORIDE/SODIUM [Concomitant]
  6. CYCLIZINE [Concomitant]
     Active Substance: CYCLIZINE
  7. METOCLOPRAMIDE. [Concomitant]
     Active Substance: METOCLOPRAMIDE
  8. LEUPRORELIN ACETATE [Concomitant]
     Active Substance: LEUPROLIDE ACETATE

REACTIONS (1)
  - Neutropenic sepsis [None]

NARRATIVE: CASE EVENT DATE: 20130621
